FAERS Safety Report 7515662-X (Version None)
Quarter: 2011Q2

REPORT INFORMATION
  Report Type: 
  Country: None (occurrence: None)
  Receive Date: 20110601
  Receipt Date: 20100726
  Transmission Date: 20111010
  Serious: Yes (Other)
  Sender: FDA-Public Use
  Company Number: US-PFIZER INC-2010094360

PATIENT
  Sex: Female
  Weight: 72.562 kg

DRUGS (4)
  1. LEVOTHROID [Concomitant]
     Indication: THYROID DISORDER
     Dosage: 0.175 MG, 1X/DAY
     Route: 048
  2. FLUOXETINE HYDROCHLORIDE [Concomitant]
     Dosage: 20 MG, 1X/DAY
  3. CHANTIX [Suspect]
     Indication: SMOKING CESSATION THERAPY
     Dosage: 0.5 MG, 1X/DAY
     Route: 048
     Dates: start: 20100401, end: 20100101
  4. VERAPAMIL [Concomitant]
     Dosage: 240 MG, 1X/DAY

REACTIONS (1)
  - VERTIGO [None]
